FAERS Safety Report 20250954 (Version 1)
Quarter: 2021Q4

REPORT INFORMATION
  Report Type: Spontaneous
  Country: US (occurrence: US)
  Receive Date: 20211229
  Receipt Date: 20211229
  Transmission Date: 20220303
  Serious: Yes (Other)
  Sender: FDA-Public Use
  Company Number: US-CLOVIS ONCOLOGY-CLO-2021-001376

PATIENT
  Sex: Female

DRUGS (1)
  1. RUBRACA [Suspect]
     Active Substance: RUCAPARIB CAMSYLATE
     Indication: Ovarian cancer
     Dosage: ^1200 MG, QTY 60 FOR 15 DAYS^ AND ^300MG^ PER ACCREDO
     Dates: start: 202107, end: 2021

REACTIONS (1)
  - Ovarian cancer recurrent [Unknown]
